FAERS Safety Report 6033999-0 (Version None)
Quarter: 2009Q1

REPORT INFORMATION
  Report Type: 
  Country: None (occurrence: None)
  Receive Date: 20090109
  Receipt Date: 20090109
  Transmission Date: 20090719
  Serious: No
  Sender: FDA-Public Use
  Company Number: None

PATIENT
  Age: 58 Year
  Sex: Male
  Weight: 83 kg

DRUGS (1)
  1. DALTEPARIN SODIUM [Suspect]
     Indication: DEEP VEIN THROMBOSIS
     Dosage: 15000 UNITS EVERY DAY SQ
     Route: 058
     Dates: start: 20081101, end: 20081217

REACTIONS (3)
  - CONDITION AGGRAVATED [None]
  - THROMBOSIS [None]
  - TREATMENT FAILURE [None]
